FAERS Safety Report 8597389-9 (Version None)
Quarter: 2012Q3

REPORT INFORMATION
  Report Type: 
  Country: None (occurrence: None)
  Receive Date: 20120816
  Receipt Date: 20120801
  Transmission Date: 20120928
  Serious: Yes (Other)
  Sender: FDA-Public Use
  Company Number: US-JNJCP-30000123205

PATIENT
  Age: 32 Year
  Sex: Male
  Weight: 68 kg

DRUGS (2)
  1. NEUTROGENA MEN INVIGORATING FACE WASH [Suspect]
     Dosage: QUARTER SIZE AMOUNT
     Route: 061
  2. NTG MEN ACTIVE PROTECT FACE LOT SPF50+ USA NTAPFLUS [Suspect]
     Dosage: ENOUGH AMOUNT TO COVER FACE
     Route: 061

REACTIONS (3)
  - APPLICATION SITE BURN [None]
  - APPLICATION SITE URTICARIA [None]
  - APPLICATION SITE PAPULES [None]
